FAERS Safety Report 18127289 (Version 1)
Quarter: 2020Q3

REPORT INFORMATION
  Report Type: Spontaneous
  Country: UA (occurrence: UA)
  Receive Date: 20200810
  Receipt Date: 20200810
  Transmission Date: 20201103
  Serious: Yes (Hospitalization)
  Sender: FDA-Public Use
  Company Number: UA-TEVA-2020-UA-1809612

PATIENT
  Age: 67 Year
  Sex: Female

DRUGS (1)
  1. CLOPIDOGREL?TEVA [Suspect]
     Active Substance: CLOPIDOGREL BISULFATE
     Dosage: IN DOSE 75 MG
     Route: 065

REACTIONS (1)
  - Vascular stent thrombosis [Recovered/Resolved]

NARRATIVE: CASE EVENT DATE: 2019
